FAERS Safety Report 24191817 (Version 1)
Quarter: 2024Q3

REPORT INFORMATION
  Report Type: Spontaneous
  Country: US (occurrence: US)
  Receive Date: 20240809
  Receipt Date: 20240809
  Transmission Date: 20241017
  Serious: Yes (Death)
  Sender: NOVARTIS
  Company Number: US-002147023-NVSC2024US161782

PATIENT
  Sex: Male

DRUGS (1)
  1. PLUVICTO [Suspect]
     Active Substance: LUTETIUM LU-177 VIPIVOTIDE TETRAXETAN
     Indication: Hormone-refractory prostate cancer
     Dosage: 7.5 GBQ(MECABEQUERAL)(VIAL) (ONCE EVERY 6 WEEKS FOR A TOTAL OF 6 DOSES)
     Route: 042
     Dates: start: 20230711, end: 20231004

REACTIONS (3)
  - Haemorrhage intracranial [Fatal]
  - Subdural haematoma [Fatal]
  - Anaemia [Unknown]
